FAERS Safety Report 5328110-5 (Version None)
Quarter: 2007Q2

REPORT INFORMATION
  Report Type: 
  Country: None (occurrence: None)
  Receive Date: 20070514
  Receipt Date: 20070504
  Transmission Date: 20071010
  Serious: Yes (Hospitalization)
  Sender: FDA-Public Use
  Company Number: S07-USA-01917-01

PATIENT
  Age: 25 Year
  Sex: Female
  Weight: 27.2158 kg

DRUGS (4)
  1. LEXAPRO [Suspect]
     Dosage: 10 MG QD PO
     Route: 048
     Dates: end: 20070101
  2. LEXAPRO [Suspect]
     Dosage: 20 MG QD PO
     Route: 048
     Dates: start: 20070101, end: 20070504
  3. DEPAKOTE [Concomitant]
  4. LAMICTAL [Concomitant]

REACTIONS (2)
  - AGGRESSION [None]
  - STATUS EPILEPTICUS [None]
